FAERS Safety Report 7009469-X (Version None)
Quarter: 2010Q3

REPORT INFORMATION
  Report Type: 
  Country: None (occurrence: None)
  Receive Date: 20100923
  Receipt Date: 20100914
  Transmission Date: 20110219
  Serious: Yes (Hospitalization)
  Sender: FDA-Public Use
  Company Number: US-US-EMD SERONO, INC.-7017676

PATIENT
  Sex: Female

DRUGS (4)
  1. REBIF [Suspect]
     Indication: MULTIPLE SCLEROSIS
     Route: 058
     Dates: start: 20080124
  2. SERTRALINE HYDROCHLORIDE [Concomitant]
     Indication: DEPRESSION
     Dates: start: 20080101
  3. BENICAR [Concomitant]
     Indication: HYPERTENSION
  4. PROVIGIL [Concomitant]
     Indication: ENERGY INCREASED
     Dates: start: 20080101

REACTIONS (4)
  - DEPRESSION [None]
  - FALL [None]
  - MUSCULAR WEAKNESS [None]
  - UPPER LIMB FRACTURE [None]
